FAERS Safety Report 7293945-9 (Version None)
Quarter: 2011Q1

REPORT INFORMATION
  Report Type: 
  Country: None (occurrence: None)
  Receive Date: 20110204
  Receipt Date: 20110118
  Transmission Date: 20110831
  Serious: Yes (Hospitalization)
  Sender: FDA-Public Use
  Company Number: UTC-003855

PATIENT
  Age: 77 Year
  Sex: Female
  Weight: 53.6 kg

DRUGS (3)
  1. TYVASO [Suspect]
     Indication: PULMONARY ARTERIAL HYPERTENSION
     Dosage: 216 MCG (54 MCG,4 IN 1 D), INHALATION
     Route: 055
     Dates: start: 20101117
  2. REVATIO [Concomitant]
  3. TRACLEER [Concomitant]

REACTIONS (2)
  - PULMONARY EMBOLISM [None]
  - LUNG INFECTION [None]
